FAERS Safety Report 20773080 (Version 1)
Quarter: 2022Q2

REPORT INFORMATION
  Report Type: Spontaneous
  Country: PT (occurrence: PT)
  Receive Date: 20220502
  Receipt Date: 20220502
  Transmission Date: 20220720
  Serious: Yes (Life-Threatening, Other)
  Sender: FDA-Public Use
  Company Number: PT-PFIZER INC-202200597970

PATIENT
  Age: 52 Year
  Sex: Female

DRUGS (14)
  1. IDARUBICIN HYDROCHLORIDE [Suspect]
     Active Substance: IDARUBICIN HYDROCHLORIDE
     Indication: Acute myeloid leukaemia
     Dosage: 12 MG/M2, DAILY
     Route: 042
     Dates: start: 20190331
  2. CYTARABINE [Suspect]
     Active Substance: CYTARABINE
     Indication: Acute myeloid leukaemia
     Dosage: 100 MG/M2, DAILY
     Route: 042
     Dates: start: 20190331
  3. FLUCONAZOLE [Concomitant]
     Active Substance: FLUCONAZOLE
     Indication: Prophylaxis
     Dosage: 200 MG, DAILY
     Route: 048
     Dates: start: 2019
  4. ACYCLOVIR [Concomitant]
     Active Substance: ACYCLOVIR
     Indication: Prophylaxis
     Dosage: 200 MG, 2X/DAY (Q12H)
     Route: 048
     Dates: start: 2019
  5. VANCOMYCIN [Concomitant]
     Active Substance: VANCOMYCIN
     Indication: Skin bacterial infection
     Dosage: 1 G, LOADING DOSE
     Route: 042
     Dates: start: 2019
  6. VANCOMYCIN [Concomitant]
     Active Substance: VANCOMYCIN
     Dosage: 1 G, 2X/DAY (Q12H)
     Route: 042
     Dates: start: 2019
  7. MEROPENEM [Concomitant]
     Active Substance: MEROPENEM
     Indication: Skin bacterial infection
     Dosage: 2 G, 3X/DAY (Q8H)
     Route: 042
     Dates: start: 2019
  8. AMIKACIN [Concomitant]
     Active Substance: AMIKACIN
     Indication: Skin bacterial infection
     Dosage: 1.5 G, 1X/DAY (Q24H)
     Route: 042
     Dates: start: 2019
  9. COLISTIN [Concomitant]
     Active Substance: COLISTIN
     Indication: Skin bacterial infection
     Dosage: 9 M UNITS LOADING DOSE
     Route: 042
     Dates: start: 2019
  10. COLISTIN [Concomitant]
     Active Substance: COLISTIN
     Dosage: UNK, 2X/DAY (4.5 M UNITS Q12H)
     Route: 042
     Dates: start: 2019
  11. ACYCLOVIR [Concomitant]
     Active Substance: ACYCLOVIR
     Indication: Skin bacterial infection
     Dosage: 350 MG, 2X/DAY (Q12H)
     Route: 042
  12. TIGECYCLINE [Concomitant]
     Active Substance: TIGECYCLINE
     Indication: Skin bacterial infection
     Dosage: 100 MG LOADING
     Route: 042
     Dates: start: 2019
  13. TIGECYCLINE [Concomitant]
     Active Substance: TIGECYCLINE
     Dosage: 50 MG, 2X/DAY (Q12H)
     Route: 042
     Dates: start: 2019
  14. DAPTOMYCIN [Concomitant]
     Active Substance: DAPTOMYCIN
     Indication: Skin bacterial infection
     Dosage: 500 MG, 2X/DAY (Q12H)
     Route: 042
     Dates: start: 2019

REACTIONS (2)
  - Klebsiella infection [Recovered/Resolved]
  - Necrotising fasciitis [Recovered/Resolved]

NARRATIVE: CASE EVENT DATE: 20190101
